FAERS Safety Report 5507540-2 (Version None)
Quarter: 2007Q4

REPORT INFORMATION
  Report Type: 
  Country: None (occurrence: None)
  Receive Date: 20071106
  Receipt Date: 20071030
  Transmission Date: 20080405
  Serious: Yes (Disabling)
  Sender: FDA-Public Use
  Company Number: CH-AVENTIS-200719352GDDC

PATIENT
  Age: 51 Year
  Sex: Male

DRUGS (8)
  1. FLAGYL [Suspect]
     Dosage: DOSE QUANTITY: 1000
     Route: 048
     Dates: start: 20061019, end: 20070501
  2. CIPROXIN                           /00697201/ [Suspect]
     Dosage: DOSE QUANTITY: 1000
     Route: 048
     Dates: start: 20061019, end: 20070501
  3. OXALIPLATIN [Concomitant]
     Dosage: DOSE: UNK
     Route: 042
     Dates: start: 20060221, end: 20060406
  4. OXALIPLATIN [Concomitant]
     Dosage: DOSE: UNK
     Route: 042
     Dates: start: 20060813, end: 20060826
  5. FLUOROURACIL [Concomitant]
     Dosage: DOSE: UNK
     Route: 042
     Dates: start: 20060221, end: 20060406
  6. FLUOROURACIL [Concomitant]
     Dosage: DOSE: UNK
     Route: 042
     Dates: start: 20060813, end: 20060826
  7. LEUCOVORIN [Concomitant]
     Dosage: DOSE: UNK
     Route: 042
     Dates: start: 20060221, end: 20060406
  8. LEUCOVORIN [Concomitant]
     Dosage: DOSE: UNK
     Route: 042
     Dates: start: 20060813, end: 20060826

REACTIONS (1)
  - NEUROPATHY PERIPHERAL [None]
